FAERS Safety Report 12182431 (Version 1)
Quarter: 2016Q1

REPORT INFORMATION
  Report Type: Report from Study
  Country: US (occurrence: US)
  Receive Date: 20160316
  Receipt Date: 20160316
  Transmission Date: 20160526
  Serious: Yes (Hospitalization)
  Sender: FDA-Public Use
  Company Number: US-AMGEN-USASL2016029222

PATIENT
  Age: 67 Year
  Sex: Female

DRUGS (1)
  1. REPATHA [Suspect]
     Active Substance: EVOLOCUMAB
     Indication: PRODUCT USED FOR UNKNOWN INDICATION
     Dosage: 140 MG, Q2WK
     Route: 065
     Dates: start: 20160229, end: 201603

REACTIONS (4)
  - Influenza like illness [Unknown]
  - Emphysema [Unknown]
  - Rhinorrhoea [Unknown]
  - Chronic obstructive pulmonary disease [Unknown]
